FAERS Safety Report 6007729-2 (Version None)
Quarter: 2008Q4

REPORT INFORMATION
  Report Type: 
  Country: None (occurrence: None)
  Receive Date: 20081217
  Receipt Date: 20080522
  Transmission Date: 20090506
  Serious: No
  Sender: FDA-Public Use
  Company Number: US-ASTRAZENECA-2008UW10535

PATIENT
  Age: 71 Year
  Sex: Female
  Weight: 56.7 kg

DRUGS (11)
  1. CRESTOR [Suspect]
     Indication: BLOOD CHOLESTEROL INCREASED
     Route: 048
  2. CLONAZEPAM [Concomitant]
  3. DIGOXIN [Concomitant]
  4. ENTERIC COATED ACETYLSALICYLIC ACID [Concomitant]
  5. PROTONIX [Concomitant]
  6. DARVOCET [Concomitant]
  7. TOPROL-XL [Concomitant]
  8. GLUCOSAMINE AND CHONDROITIN [Concomitant]
  9. POTASSIUM CHLORIDE [Concomitant]
  10. ASCORBIC ACID [Concomitant]
  11. CALCIUM [Concomitant]

REACTIONS (3)
  - ARTHRALGIA [None]
  - OEDEMA PERIPHERAL [None]
  - PAIN IN EXTREMITY [None]
